FAERS Safety Report 4666971-3 (Version None)
Quarter: 2005Q2

REPORT INFORMATION
  Report Type: 
  Country: None (occurrence: None)
  Receive Date: 20050518
  Receipt Date: 20040907
  Transmission Date: 20051028
  Serious: Yes (Other)
  Sender: FDA-Public Use
  Company Number: 2004232295US

PATIENT
  Age: 47 Year
  Sex: Female

DRUGS (3)
  1. PROVERA [Suspect]
     Dates: start: 19920101, end: 19960101
  2. PREMARIN [Suspect]
     Dates: start: 19920101
  3. PREMPRO [Suspect]
     Dates: start: 19960101, end: 19960401

REACTIONS (1)
  - PULMONARY EMBOLISM [None]
